FAERS Safety Report 8120926-5 (Version None)
Quarter: 2012Q1

REPORT INFORMATION
  Report Type: 
  Country: None (occurrence: None)
  Receive Date: 20120208
  Receipt Date: 20120130
  Transmission Date: 20120608
  Serious: Yes (Hospitalization)
  Sender: FDA-Public Use
  Company Number: US-BAYER-2011-049713

PATIENT
  Age: 22 Year
  Sex: Female
  Weight: 81.633 kg

DRUGS (8)
  1. SYMAX [Concomitant]
     Dosage: 2 TABLETS
     Route: 048
     Dates: start: 20090710, end: 20090807
  2. YASMIN [Suspect]
     Indication: MENSTRUATION IRREGULAR
     Dosage: UNK
     Dates: end: 20090101
  3. MYLANTA DOUBLE STRENGTH [Concomitant]
  4. NEXIUM [Concomitant]
     Dosage: 40 MG, UNK
     Route: 048
     Dates: start: 20080801, end: 20090807
  5. PROTOPIC [Concomitant]
     Indication: ECZEMA
     Dosage: UNK
     Dates: start: 20020101
  6. PREVACID [Concomitant]
     Dosage: 30 MG, UNK
     Route: 048
     Dates: start: 20090710
  7. PROVENTIL [Concomitant]
     Indication: ASTHMA
     Dosage: 2 PUFF(S), PRN
     Route: 045
     Dates: start: 20070618, end: 20090511
  8. CARAFATE [Concomitant]

REACTIONS (3)
  - CHOLECYSTITIS [None]
  - PAIN [None]
  - ABDOMINAL PAIN [None]
